FAERS Safety Report 9192073 (Version 1)
Quarter: 2013Q1

REPORT INFORMATION
  Report Type: Spontaneous
  Country: US (occurrence: None)
  Receive Date: 20130326
  Receipt Date: 20130326
  Transmission Date: 20140127
  Serious: Yes (Other)
  Sender: FDA-Public Use
  Company Number: None

PATIENT
  Age: 52 Year
  Sex: Female
  Weight: 61.24 kg

DRUGS (1)
  1. VERAPAMIL EXTENDED RELEASE [Suspect]
     Indication: HYPERTENSION
     Route: 048
     Dates: start: 20130319, end: 20130321

REACTIONS (2)
  - Blood pressure systolic increased [None]
  - Product substitution issue [None]
